FAERS Safety Report 8548377-X (Version None)
Quarter: 2012Q3

REPORT INFORMATION
  Report Type: 
  Country: None (occurrence: None)
  Receive Date: 20120730
  Receipt Date: 20120721
  Transmission Date: 20120928
  Serious: Yes (Other)
  Sender: FDA-Public Use
  Company Number: CA-JNJFOC-20120712237

PATIENT
  Sex: Female

DRUGS (2)
  1. REMICADE [Suspect]
     Indication: CROHN'S DISEASE
     Route: 042
     Dates: start: 20110526
  2. IMURAN [Concomitant]
     Dosage: 2 TABLETS ONCE DAILY
     Route: 065

REACTIONS (2)
  - VIITH NERVE PARALYSIS [None]
  - HERPES ZOSTER [None]
